FAERS Safety Report 10352426 (Version 1)
Quarter: 2014Q3

REPORT INFORMATION
  Report Type: Spontaneous
  Country: US (occurrence: US)
  Receive Date: 20140730
  Receipt Date: 20140730
  Transmission Date: 20150326
  Serious: No
  Sender: FDA-Public Use
  Company Number: US-ABBVIE-13P-163-1149584-00

PATIENT
  Age: 74 Year
  Sex: Female
  Weight: 65.83 kg

DRUGS (1)
  1. SYNTHROID [Suspect]
     Active Substance: LEVOTHYROXINE SODIUM
     Indication: HYPOTHYROIDISM
     Dosage: SAMPLES
     Route: 048
     Dates: start: 20130911

REACTIONS (1)
  - Visual brightness [Not Recovered/Not Resolved]

NARRATIVE: CASE EVENT DATE: 20130911
